FAERS Safety Report 13592679 (Version 1)
Quarter: 2017Q2

REPORT INFORMATION
  Report Type: Spontaneous
  Country: FR (occurrence: FR)
  Receive Date: 20170530
  Receipt Date: 20170530
  Transmission Date: 20170830
  Serious: Yes (Other)
  Sender: FDA-Public Use
  Company Number: PHHY2017FR075453

PATIENT
  Sex: Female

DRUGS (1)
  1. COSENTYX [Suspect]
     Active Substance: SECUKINUMAB
     Indication: ANKYLOSING SPONDYLITIS
     Dosage: UNK UNK, QW (2 INJECTIONS PER WEEK)
     Route: 065
     Dates: start: 201701

REACTIONS (7)
  - Proctitis [Unknown]
  - Diarrhoea [Unknown]
  - General physical health deterioration [Unknown]
  - Rectal haemorrhage [Unknown]
  - Crohn^s disease [Unknown]
  - Abdominal discomfort [Unknown]
  - Fatigue [Unknown]
